FAERS Safety Report 21080746 (Version 1)
Quarter: 2022Q3

REPORT INFORMATION
  Report Type: Spontaneous
  Country: US (occurrence: US)
  Receive Date: 20220714
  Receipt Date: 20220714
  Transmission Date: 20221026
  Serious: No
  Sender: FDA-Public Use
  Company Number: US-RECKITT BENCKISER HEALTHCARE INT LIMITED-RB-90992-2021

PATIENT
  Age: 39 Year
  Sex: Male

DRUGS (1)
  1. MUCINEX [Suspect]
     Active Substance: GUAIFENESIN
     Indication: Nasopharyngitis
     Dosage: UNK UNK, SINGLE
     Route: 048
     Dates: start: 20210708

REACTIONS (3)
  - Accidental overdose [Recovered/Resolved]
  - Product use in unapproved indication [Recovered/Resolved]
  - Somnolence [Recovered/Resolved]

NARRATIVE: CASE EVENT DATE: 20210708
